FAERS Safety Report 8078715-6 (Version None)
Quarter: 2012Q1

REPORT INFORMATION
  Report Type: 
  Country: None (occurrence: None)
  Receive Date: 20120127
  Receipt Date: 20110111
  Transmission Date: 20120608
  Serious: No
  Sender: FDA-Public Use
  Company Number: US-ABBOTT-11P-163-0696382-00

PATIENT
  Sex: Female
  Weight: 99.88 kg

DRUGS (1)
  1. HUMIRA [Suspect]
     Indication: PSORIASIS
     Dosage: X6 WKS
     Route: 058
     Dates: start: 20100801, end: 20101001

REACTIONS (4)
  - PSORIASIS [None]
  - MUSCULOSKELETAL STIFFNESS [None]
  - HAEMORRHAGE [None]
  - PRURITUS [None]
